FAERS Safety Report 18837558 (Version 2)
Quarter: 2021Q1

REPORT INFORMATION
  Report Type: Report from Study
  Country: AT (occurrence: AT)
  Receive Date: 20210203
  Receipt Date: 20210218
  Transmission Date: 20210419
  Serious: Yes (Other)
  Sender: FDA-Public Use
  Company Number: AT-CELGENEUS-AUT-20210106671

PATIENT
  Age: 71 Year
  Sex: Male
  Weight: 100 kg

DRUGS (15)
  1. VELCADE [Concomitant]
     Active Substance: BORTEZOMIB
     Route: 065
     Dates: start: 20140110, end: 20140217
  2. NEXADRON [Concomitant]
     Indication: PRODUCT USED FOR UNKNOWN INDICATION
     Route: 065
  3. TEGRETOL [Concomitant]
     Active Substance: CARBAMAZEPINE
     Indication: PRODUCT USED FOR UNKNOWN INDICATION
     Dosage: 400 MILLIGRAM
     Route: 065
  4. ALNA RETARD [Concomitant]
     Active Substance: TAMSULOSIN HYDROCHLORIDE
     Indication: PRODUCT USED FOR UNKNOWN INDICATION
     Dosage: .4 MILLIGRAM
     Route: 065
  5. THROMBO ASS [Concomitant]
     Active Substance: ASPIRIN
     Indication: PRODUCT USED FOR UNKNOWN INDICATION
     Dosage: 100 MILLIGRAM
     Route: 065
  6. VALAREX [Concomitant]
     Indication: PRODUCT USED FOR UNKNOWN INDICATION
     Route: 065
  7. TEGRETOL [Concomitant]
     Active Substance: CARBAMAZEPINE
     Dosage: 400 MILLIGRAM
     Route: 065
  8. VELCADE [Concomitant]
     Active Substance: BORTEZOMIB
     Indication: PLASMA CELL MYELOMA
     Route: 065
     Dates: start: 20130125, end: 20130408
  9. DEXAMETHASONE. [Concomitant]
     Active Substance: DEXAMETHASONE
     Route: 065
     Dates: start: 20140110, end: 20140217
  10. PANTOLOC [Concomitant]
     Active Substance: PANTOPRAZOLE SODIUM
     Indication: GASTRITIS PROPHYLAXIS
     Dosage: 40 MILLIGRAM
     Route: 065
  11. SELEXID [Concomitant]
     Indication: PRODUCT USED FOR UNKNOWN INDICATION
     Dosage: 400 MILLIGRAM
     Route: 065
     Dates: start: 20210120, end: 20210127
  12. VELCADE [Concomitant]
     Active Substance: BORTEZOMIB
     Route: 065
     Dates: start: 20130604, end: 20131108
  13. LENALIDOMIDE [Suspect]
     Active Substance: LENALIDOMIDE
     Indication: PLASMA CELL MYELOMA
     Dosage: 10 MILLIGRAM
     Route: 048
     Dates: start: 20140110, end: 20140217
  14. LENALIDOMIDE [Suspect]
     Active Substance: LENALIDOMIDE
     Dosage: 10 MILLIGRAM
     Route: 048
     Dates: start: 20140306, end: 20201111
  15. DEXAMETHASONE. [Concomitant]
     Active Substance: DEXAMETHASONE
     Indication: PLASMA CELL MYELOMA
     Route: 065
     Dates: start: 20130125, end: 20130408

REACTIONS (1)
  - Bladder transitional cell carcinoma [Not Recovered/Not Resolved]

NARRATIVE: CASE EVENT DATE: 20210119
